FAERS Safety Report 5481725-6 (Version None)
Quarter: 2007Q4

REPORT INFORMATION
  Report Type: 
  Country: None (occurrence: None)
  Receive Date: 20071010
  Receipt Date: 20070929
  Transmission Date: 20080405
  Serious: Yes (Hospitalization)
  Sender: FDA-Public Use
  Company Number: BR-SHR-BR-2007-037070

PATIENT
  Age: 53 Year
  Sex: Male

DRUGS (3)
  1. BETASERON [Suspect]
     Dosage: 8 MIU, EVERY 2D
     Route: 058
     Dates: start: 20030101
  2. INSULIN [Concomitant]
  3. UNSPECIFIED DRUG [Concomitant]
     Indication: HYPERTENSION

REACTIONS (1)
  - LUNG DISORDER [None]
